FAERS Safety Report 14608060 (Version 2)
Quarter: 2018Q1

REPORT INFORMATION
  Report Type: Spontaneous
  Country: IN (occurrence: IN)
  Receive Date: 20180307
  Receipt Date: 20180313
  Transmission Date: 20180509
  Serious: Yes (Hospitalization, Other)
  Sender: FDA-Public Use
  Company Number: IN-009507513-1803IND000248

PATIENT
  Age: 60 Year
  Sex: Female

DRUGS (4)
  1. NOVOMIX 30 [Concomitant]
     Active Substance: INSULIN ASPART
     Dosage: UNK
  2. JANUMET [Suspect]
     Active Substance: METFORMIN HYDROCHLORIDE\SITAGLIPTIN PHOSPHATE
     Indication: TYPE 2 DIABETES MELLITUS
     Dosage: 500, QD
     Route: 048
  3. GLUCONORM [Concomitant]
     Dosage: UNK
  4. PANTOCID D [Concomitant]

REACTIONS (5)
  - Jaundice [Not Recovered/Not Resolved]
  - Bile duct obstruction [Unknown]
  - Lymphadenopathy [Unknown]
  - Biliary dilatation [Unknown]
  - Cholelithiasis [Unknown]

NARRATIVE: CASE EVENT DATE: 20180123
